FAERS Safety Report 18353939 (Version 1)
Quarter: 2020Q4

REPORT INFORMATION
  Report Type: Spontaneous
  Country: ES (occurrence: ES)
  Receive Date: 20201007
  Receipt Date: 20201007
  Transmission Date: 20210114
  Serious: Yes (Death, Hospitalization, Other)
  Sender: FDA-Public Use
  Company Number: ES-AUROBINDO-AUR-APL-2020-051367

PATIENT
  Age: 72 Year
  Sex: Female

DRUGS (4)
  1. MEROPENEM. [Suspect]
     Active Substance: MEROPENEM
     Indication: INFECTIVE EXACERBATION OF BRONCHIECTASIS
     Dosage: 1 GRAM, TWO TIMES A DAY
     Route: 042
     Dates: start: 20200701, end: 20200707
  2. LINEZOLID. [Suspect]
     Active Substance: LINEZOLID
     Indication: INFECTIVE EXACERBATION OF BRONCHIECTASIS
     Dosage: 600 MILLIGRAM, ONCE A DAY
     Route: 042
     Dates: start: 20200702, end: 20200707
  3. AZITHROMYCIN ANHYDROUS. [Suspect]
     Active Substance: AZITHROMYCIN ANHYDROUS
     Indication: INFECTIVE EXACERBATION OF BRONCHIECTASIS
     Dosage: 500 MILLIGRAM, ONCE A DAY
     Route: 048
     Dates: start: 20200629, end: 20200701
  4. CEFTRIAXONE. [Suspect]
     Active Substance: CEFTRIAXONE
     Indication: INFECTIVE EXACERBATION OF BRONCHIECTASIS
     Dosage: 2 GRAM, ONCE A DAY
     Route: 042
     Dates: start: 20200628, end: 20200701

REACTIONS (3)
  - Septic shock [Fatal]
  - Acute kidney injury [Fatal]
  - Diarrhoea [Fatal]

NARRATIVE: CASE EVENT DATE: 20200707
